FAERS Safety Report 21771782 (Version 1)
Quarter: 2022Q4

REPORT INFORMATION
  Report Type: Spontaneous
  Country: BE (occurrence: BE)
  Receive Date: 20221223
  Receipt Date: 20221223
  Transmission Date: 20230112
  Serious: Yes (Hospitalization)
  Sender: FDA-Public Use
  Company Number: None

PATIENT
  Age: 77 Year
  Sex: Male
  Weight: 93 kg

DRUGS (5)
  1. BORTEZOMIB [Suspect]
     Active Substance: BORTEZOMIB
     Indication: Plasma cell myeloma
     Dosage: UNIT DOSE : 2.72 MG, FREQUENCY TIME : 1 WEEKS, DURATION : 18 DAYS
     Route: 065
     Dates: start: 20210406, end: 20210424
  2. DARATUMUMAB [Suspect]
     Active Substance: DARATUMUMAB
     Indication: Plasma cell myeloma
     Dosage: UNIT DOSE : 1536 MG, FREQUENCY TIME : 1 WEEKS, DURATION : 18 DAYS
     Route: 065
     Dates: start: 20210406, end: 20210424
  3. PANTOMED [Concomitant]
     Indication: Product used for unknown indication
     Dosage: SEVERAL MONTHS OF ADMINISTRATION, FORM STRENGTH : 20 MG, UNIT DOSE : 1DOSAGE FORMS, FREQUENCY TIME :
     Route: 065
  4. CETIRIZINE [Concomitant]
     Active Substance: CETIRIZINE HYDROCHLORIDE
     Indication: Prophylaxis
     Dosage: BEFORE CHEMO, FORM STRENGTH : 10 MG, UNIT DOSE : 1 DOSAGE FORMS
     Route: 065
     Dates: start: 20210406, end: 20210406
  5. DAFALGAN [Concomitant]
     Active Substance: ACETAMINOPHEN
     Indication: Pain
     Dosage: IF PAIN, FORM STRENGTH : 1 GRAM, UNIT DOSE : 1 DOSAGE FORMS
     Route: 065

REACTIONS (3)
  - Alanine aminotransferase increased [Recovering/Resolving]
  - Aspartate aminotransferase increased [Recovering/Resolving]
  - Hepatic cytolysis [Recovering/Resolving]

NARRATIVE: CASE EVENT DATE: 20210407
